FAERS Safety Report 25535292 (Version 2)
Quarter: 2025Q3

REPORT INFORMATION
  Report Type: Spontaneous
  Country: SG (occurrence: SG)
  Receive Date: 20250709
  Receipt Date: 20250922
  Transmission Date: 20251020
  Serious: Yes (Other)
  Sender: AMERICAN REGENT
  Company Number: SG-AMERICAN REGENT INC-2025002684

PATIENT
  Age: 47 Year
  Sex: Female

DRUGS (1)
  1. FERINJECT [Suspect]
     Active Substance: FERRIC CARBOXYMALTOSE
     Indication: Product used for unknown indication
     Route: 042
     Dates: start: 20250627

REACTIONS (1)
  - Acute respiratory distress syndrome [Unknown]

NARRATIVE: CASE EVENT DATE: 20250627
